FAERS Safety Report 6318087-8 (Version None)
Quarter: 2009Q3

REPORT INFORMATION
  Report Type: 
  Country: None (occurrence: None)
  Receive Date: 20090821
  Receipt Date: 20090810
  Transmission Date: 20100115
  Serious: Yes (Hospitalization)
  Sender: FDA-Public Use
  Company Number: US-NOVOPROD-290721

PATIENT
  Age: 44 Year
  Sex: Male

DRUGS (2)
  1. NOVOLIN N [Suspect]
     Indication: TYPE 1 DIABETES MELLITUS
     Dosage: 30 IU, QD
     Route: 058
  2. NOVOLIN R [Suspect]
     Indication: TYPE 1 DIABETES MELLITUS
     Dosage: SLIDING SCALE
     Route: 058

REACTIONS (1)
  - CHEST PAIN [None]
